FAERS Safety Report 16803346 (Version 1)
Quarter: 2019Q3

REPORT INFORMATION
  Report Type: Spontaneous
  Country: US (occurrence: US)
  Receive Date: 20190913
  Receipt Date: 20190913
  Transmission Date: 20191005
  Serious: No
  Sender: FDA-Public Use
  Company Number: US-GLAXOSMITHKLINE-US2019165434

PATIENT
  Age: 30 Year
  Sex: Male

DRUGS (1)
  1. NICORETTE WHITE ICE MINT [Suspect]
     Active Substance: NICOTINE
     Indication: SMOKING CESSATION THERAPY
     Dosage: UNK
     Route: 048

REACTIONS (5)
  - Anxiety [Unknown]
  - Blister [Unknown]
  - Pain in extremity [Unknown]
  - Product complaint [Unknown]
  - Nicotine dependence [Unknown]
